FAERS Safety Report 14982687 (Version 1)
Quarter: 2018Q2

REPORT INFORMATION
  Report Type: Spontaneous
  Country: JP (occurrence: JP)
  Receive Date: 20180607
  Receipt Date: 20180607
  Transmission Date: 20180711
  Serious: Yes (Hospitalization)
  Sender: FDA-Public Use
  Company Number: JP-BIOVITRUM-2016JP0950

PATIENT
  Age: 1 Month
  Weight: 4 kg

DRUGS (9)
  1. VICCLOX [Concomitant]
     Active Substance: ACYCLOVIR SODIUM
     Route: 048
     Dates: start: 20160901
  2. NEXIUM [Concomitant]
     Active Substance: ESOMEPRAZOLE MAGNESIUM
     Route: 048
     Dates: start: 20160901
  3. ORFADIN [Suspect]
     Active Substance: NITISINONE
     Indication: TYROSINAEMIA
     Route: 048
     Dates: start: 20160819, end: 20160901
  4. BAKTAR [Concomitant]
     Active Substance: SULFAMETHOXAZOLE\TRIMETHOPRIM
     Route: 048
     Dates: start: 20160901
  5. ORFADIN [Suspect]
     Active Substance: NITISINONE
     Route: 048
     Dates: start: 20160902
  6. PIARLE [Concomitant]
     Dates: start: 20160815, end: 20160826
  7. TAURINE [Concomitant]
     Active Substance: TAURINE
     Route: 048
     Dates: start: 20160817, end: 20160826
  8. PROGRAF [Concomitant]
     Active Substance: TACROLIMUS\TACROLIMUS ANHYDROUS
     Dates: start: 20160826
  9. URSO [Concomitant]
     Active Substance: URSODIOL
     Route: 048
     Dates: start: 20160901

REACTIONS (7)
  - Hypokalaemia [Recovered/Resolved]
  - Amino acid level increased [Unknown]
  - Bile duct stenosis [Recovered/Resolved]
  - Off label use [Unknown]
  - Liver transplant [Unknown]
  - Gamma-glutamyltransferase increased [Recovered/Resolved]
  - Blood alkaline phosphatase increased [Recovered/Resolved]

NARRATIVE: CASE EVENT DATE: 201608
